FAERS Safety Report 21054763 (Version 3)
Quarter: 2024Q4

REPORT INFORMATION
  Report Type: Spontaneous
  Country: US (occurrence: US)
  Receive Date: 20220707
  Receipt Date: 20241202
  Transmission Date: 20250115
  Serious: No
  Sender: PFIZER
  Company Number: US-PFIZER INC-PV202200014814

PATIENT
  Age: 66 Year
  Sex: Female
  Weight: 85.5 kg

DRUGS (2)
  1. IBRANCE [Suspect]
     Active Substance: PALBOCICLIB
     Indication: Breast cancer female
     Dosage: 125 MG
     Dates: start: 20220424
  2. IBRANCE [Suspect]
     Active Substance: PALBOCICLIB
     Dosage: DAILY D1-D21 EVERY 28 DAYS
     Route: 048
     Dates: start: 20231010

REACTIONS (1)
  - COVID-19 [Recovering/Resolving]

NARRATIVE: CASE EVENT DATE: 20220101
